FAERS Safety Report 11773017 (Version 2)
Quarter: 2015Q4

REPORT INFORMATION
  Report Type: Spontaneous
  Country: US (occurrence: US)
  Receive Date: 20151124
  Receipt Date: 20151231
  Transmission Date: 20160304
  Serious: Yes (Hospitalization)
  Sender: FDA-Public Use
  Company Number: US-FERRINGPH-2015FE04091

PATIENT

DRUGS (19)
  1. METAMUCIL [Concomitant]
     Active Substance: PLANTAGO SEED
     Dosage: UNK, DAILY
     Route: 048
  2. PEPCID                             /00305201/ [Concomitant]
     Active Substance: ALUMINUM HYDROXIDE\MAGNESIUM CARBONATE
     Dosage: 20 MG, DAILY
     Route: 048
  3. PROSCAR [Concomitant]
     Active Substance: FINASTERIDE
     Dosage: 5 MG, DAILY
     Route: 048
  4. ARICEPT [Concomitant]
     Active Substance: DONEPEZIL HYDROCHLORIDE
     Dosage: 5 MG, DAILY
     Route: 048
  5. NORVASC [Concomitant]
     Active Substance: AMLODIPINE BESYLATE
     Dosage: 5 MG, DAILY
     Route: 048
  6. ALPRAZOLAM. [Concomitant]
     Active Substance: ALPRAZOLAM
  7. FIRMAGON [Suspect]
     Active Substance: DEGARELIX ACETATE
     Indication: PROSTATE CANCER
     Dosage: UNK
     Route: 058
     Dates: start: 20151104
  8. PRILOSEC [Concomitant]
     Active Substance: OMEPRAZOLE MAGNESIUM
     Dosage: 20 MG, BEFORE EVERY MEAL
     Route: 048
  9. FLOMAX [Concomitant]
     Active Substance: TAMSULOSIN HYDROCHLORIDE
     Dosage: 0.4 MG, 2 TIMES DAILY
     Route: 048
  10. ASPIRIN 81 [Concomitant]
     Active Substance: ASPIRIN
     Dosage: 81 MG, DAILY
     Route: 048
  11. NASONEX [Concomitant]
     Active Substance: MOMETASONE FUROATE
     Dosage: SPRAY 2 SPRAY, DAILY
     Route: 045
  12. LEXAPRO [Concomitant]
     Active Substance: ESCITALOPRAM OXALATE
     Dosage: 10 MG, DAILY
     Route: 048
  13. LUPRON [Concomitant]
     Active Substance: LEUPROLIDE ACETATE
     Dosage: UNK, EVERY 6 HOURS
     Route: 030
  14. MOBIC [Concomitant]
     Active Substance: MELOXICAM
     Dosage: 7.5 MG, DAILY
     Route: 048
  15. SYSTANE (HYPROMELLOSE 2910 (4000 MPA.S)) [Concomitant]
     Active Substance: HYPROMELLOSE 2910 (4000 MPA.S)
  16. ISOSORBIDE DINITRATE. [Concomitant]
     Active Substance: ISOSORBIDE DINITRATE
     Dosage: 20 MG, 2 TIMES DAILY
     Route: 048
  17. ANTIVERT                           /00007101/ [Concomitant]
     Dosage: 25 MG, 3 TIMES DAILY AS NEEDED
     Route: 048
  18. MILK OF MAGNESIA [Concomitant]
     Active Substance: MAGNESIUM HYDROXIDE
     Dosage: 30 ML, AS NEEDED
     Route: 048
  19. XANAX [Concomitant]
     Active Substance: ALPRAZOLAM
     Dosage: 0.5 MG, DAILY BEFORE BED
     Route: 048

REACTIONS (2)
  - Injection site cellulitis [Recovered/Resolved]
  - Calculus ureteric [Unknown]

NARRATIVE: CASE EVENT DATE: 20151105
